FAERS Safety Report 24137088 (Version 3)
Quarter: 2024Q3

REPORT INFORMATION
  Report Type: Spontaneous
  Country: US (occurrence: US)
  Receive Date: 20240725
  Receipt Date: 20240916
  Transmission Date: 20241017
  Serious: Yes (Other)
  Sender: PFIZER
  Company Number: US-PFIZER INC-PV202400095240

PATIENT
  Age: 6 Year
  Sex: Female
  Weight: 22.68 kg

DRUGS (3)
  1. GENOTROPIN [Suspect]
     Active Substance: SOMATROPIN
     Indication: Short stature
     Dosage: 0.8 MG/DAY 7 DAYS/WEEK/DOSE IN INCREMENTS OF 0.2MG
  2. GENOTROPIN [Suspect]
     Active Substance: SOMATROPIN
     Indication: Hypopituitarism
  3. GENOTROPIN [Suspect]
     Active Substance: SOMATROPIN
     Indication: Growth hormone deficiency

REACTIONS (10)
  - Hypothyroidism [Unknown]
  - White blood cell count decreased [Recovered/Resolved]
  - Mean cell volume increased [Not Recovered/Not Resolved]
  - Mean cell haemoglobin increased [Recovered/Resolved]
  - Lymphocyte count decreased [Unknown]
  - Albumin globulin ratio increased [Recovered/Resolved]
  - Haemoglobin increased [Unknown]
  - Haematocrit increased [Unknown]
  - Carbon dioxide decreased [Unknown]
  - Blood triglycerides increased [Unknown]

NARRATIVE: CASE EVENT DATE: 20211123
